FAERS Safety Report 6928684-4 (Version None)
Quarter: 2010Q3

REPORT INFORMATION
  Report Type: 
  Country: None (occurrence: None)
  Receive Date: 20100817
  Receipt Date: 20100810
  Transmission Date: 20110219
  Serious: Yes (Hospitalization)
  Sender: FDA-Public Use
  Company Number: A0872530A

PATIENT
  Sex: Male

DRUGS (4)
  1. COREG CR [Suspect]
     Dosage: 40MG PER DAY
     Route: 048
     Dates: start: 20070101
  2. LISINOPRIL [Concomitant]
  3. WARFARIN [Concomitant]
  4. LOVENOX [Concomitant]

REACTIONS (1)
  - BLADDER NEOPLASM [None]
